FAERS Safety Report 23842074 (Version 1)
Quarter: 2024Q2

REPORT INFORMATION
  Report Type: Spontaneous
  Country: US (occurrence: None)
  Receive Date: 20240509
  Receipt Date: 20240509
  Transmission Date: 20240716
  Serious: No
  Sender: FDA-Public Use
  Company Number: None

PATIENT
  Age: 60 Year
  Sex: Male

DRUGS (1)
  1. NUBEQA [Suspect]
     Active Substance: DAROLUTAMIDE
     Indication: Metastases to liver
     Dosage: 600MG TWICE DAILY ORALLY?
     Route: 048
     Dates: start: 202404

REACTIONS (1)
  - Fracture [None]

NARRATIVE: CASE EVENT DATE: 20240419
